FAERS Safety Report 7027756-6 (Version None)
Quarter: 2010Q4

REPORT INFORMATION
  Report Type: 
  Country: None (occurrence: None)
  Receive Date: 20101005
  Receipt Date: 20100924
  Transmission Date: 20110411
  Serious: Yes (Disabling, Other)
  Sender: FDA-Public Use
  Company Number: US-BAXTER-2010BH023150

PATIENT
  Age: 16 Year
  Sex: Female
  Weight: 61 kg

DRUGS (7)
  1. GAMMAGARD LIQUID [Suspect]
     Indication: PRIMARY IMMUNODEFICIENCY SYNDROME
     Route: 042
     Dates: start: 20100521, end: 20100521
  2. GAMMAGARD LIQUID [Suspect]
     Route: 042
     Dates: start: 20100621, end: 20100621
  3. GAMMAGARD LIQUID [Suspect]
     Route: 042
     Dates: start: 20090901
  4. SYNTHROID [Concomitant]
     Indication: HYPOTHYROIDISM
     Route: 048
  5. CYTOMEL [Concomitant]
     Indication: HYPOTHYROIDISM
     Route: 048
  6. PROZAC [Concomitant]
     Indication: DEPRESSION
     Route: 048
  7. PATANOL [Concomitant]
     Indication: HYPERSENSITIVITY

REACTIONS (4)
  - LYMPHADENOPATHY [None]
  - MUSCULOSKELETAL STIFFNESS [None]
  - NECK PAIN [None]
  - RASH [None]
